FAERS Safety Report 7389136-3 (Version None)
Quarter: 2011Q2

REPORT INFORMATION
  Report Type: 
  Country: None (occurrence: None)
  Receive Date: 20110401
  Receipt Date: 20110322
  Transmission Date: 20111010
  Serious: Yes (Hospitalization)
  Sender: FDA-Public Use
  Company Number: US-ROCHE-767371

PATIENT
  Sex: Male
  Weight: 66.7 kg

DRUGS (12)
  1. DECADRON [Concomitant]
     Route: 048
  2. BEVACIZUMAB [Suspect]
     Indication: GASTRIC CANCER
     Route: 040
     Dates: start: 20110128, end: 20110311
  3. COMPAZINE [Concomitant]
     Indication: NAUSEA
     Dosage: PRN
     Route: 048
  4. COLACE [Concomitant]
     Route: 048
  5. LORAZEPAM [Concomitant]
     Route: 048
  6. IRINOTECAN HCL [Suspect]
     Indication: GASTRIC CANCER
     Route: 040
     Dates: start: 20110128, end: 20110311
  7. MORPHINE [Concomitant]
     Indication: PAIN
     Dosage: PRN
     Route: 048
  8. METHYLPHENIDATE HCL [Concomitant]
     Route: 048
  9. SENNA [Concomitant]
     Dosage: 2 TAB BID
     Route: 048
  10. MS CONTIN [Concomitant]
     Route: 048
  11. CISPLATIN [Suspect]
     Indication: GASTRIC CANCER
     Route: 040
     Dates: start: 20110128, end: 20110311
  12. OMEPRAZOLE [Concomitant]
     Route: 048

REACTIONS (1)
  - BILE DUCT OBSTRUCTION [None]
